FAERS Safety Report 10103288 (Version 2)
Quarter: 2014Q2

REPORT INFORMATION
  Report Type: Spontaneous
  Country: US (occurrence: US)
  Receive Date: 20140424
  Receipt Date: 20140424
  Transmission Date: 20141212
  Serious: Yes (Life-Threatening, Hospitalization, Other)
  Sender: FDA-Public Use
  Company Number: US-BRISTOL-MYERS SQUIBB COMPANY-20215091

PATIENT
  Age: 73 Year
  Sex: Male

DRUGS (7)
  1. ELIQUIS [Suspect]
     Indication: ATRIAL FIBRILLATION
     Route: 048
     Dates: start: 201310, end: 20140206
  2. ASPIRIN [Concomitant]
  3. METOPROLOL [Concomitant]
  4. VYTORIN [Concomitant]
  5. VALSARTAN + HCTZ [Concomitant]
  6. PRILOSEC [Concomitant]
  7. TERAZOSIN [Concomitant]

REACTIONS (1)
  - Deep vein thrombosis [Not Recovered/Not Resolved]
